FAERS Safety Report 4620581-2 (Version None)
Quarter: 2005Q1

REPORT INFORMATION
  Report Type: 
  Country: None (occurrence: None)
  Receive Date: 20050324
  Receipt Date: 20050314
  Transmission Date: 20050727
  Serious: Yes (Death, Hospitalization)
  Sender: FDA-Public Use
  Company Number: FRWYE499614MAR05

PATIENT
  Age: 71 Year
  Sex: Male

DRUGS (1)
  1. BISOPROLOL FUMARATE [Suspect]
     Route: 048

REACTIONS (8)
  - CARDIAC ARREST [None]
  - CERVICAL VERTEBRAL FRACTURE [None]
  - COMPLETED SUICIDE [None]
  - HAEMOTHORAX [None]
  - HYPOTENSION [None]
  - INTENTIONAL SELF-INJURY [None]
  - PERICARDIAL HAEMORRHAGE [None]
  - RIB FRACTURE [None]
